FAERS Safety Report 4884495-5 (Version None)
Quarter: 2005Q4

REPORT INFORMATION
  Report Type: 
  Country: None (occurrence: None)
  Receive Date: 20051201
  Receipt Date: 20050910
  Transmission Date: 20060501
  Serious: No
  Sender: FDA-Public Use
  Company Number: 2005PV002059

PATIENT
  Age: 67 Year
  Sex: Female
  Weight: 117.9352 kg

DRUGS (2)
  1. BYETTA [Suspect]
     Indication: DIABETES MELLITUS NON-INSULIN-DEPENDENT
     Dosage: SC
     Route: 058
     Dates: start: 20050909, end: 20050909
  2. GLUCOTROL [Concomitant]

REACTIONS (7)
  - BLOOD GLUCOSE [None]
  - BLOOD GLUCOSE DECREASED [None]
  - FEELING HOT [None]
  - FEELING JITTERY [None]
  - HYPERHIDROSIS [None]
  - NAUSEA [None]
  - PALPITATIONS [None]
